FAERS Safety Report 14431399 (Version 1)
Quarter: 2018Q1

REPORT INFORMATION
  Report Type: Spontaneous
  Country: US (occurrence: US)
  Receive Date: 20180124
  Receipt Date: 20180124
  Transmission Date: 20180509
  Serious: No
  Sender: FDA-Public Use
  Company Number: US-PFIZER INC-2017334372

PATIENT
  Age: 44 Year
  Sex: Male
  Weight: 106.59 kg

DRUGS (2)
  1. GENOTROPIN [Suspect]
     Active Substance: SOMATROPIN
     Indication: HYPOTHALAMO-PITUITARY DISORDER
     Dosage: 0.6 MG, 1X/DAY
     Dates: start: 20170201
  2. TESTOSTERONE. [Concomitant]
     Active Substance: TESTOSTERONE
     Indication: CRANIOCEREBRAL INJURY
     Dosage: UNK
     Dates: start: 20120501

REACTIONS (1)
  - Dizziness [Unknown]
